FAERS Safety Report 15701993 (Version 1)
Quarter: 2018Q4

REPORT INFORMATION
  Report Type: Spontaneous
  Country: US (occurrence: US)
  Receive Date: 20181209
  Receipt Date: 20181209
  Transmission Date: 20190205
  Serious: No
  Sender: FDA-Public Use
  Company Number: US-JNJFOC-20181136066

PATIENT

DRUGS (1)
  1. XARELTO [Suspect]
     Active Substance: RIVAROXABAN
     Indication: PRODUCT USED FOR UNKNOWN INDICATION
     Route: 048
     Dates: start: 20181121

REACTIONS (5)
  - Rash [Unknown]
  - Nocturia [Unknown]
  - Pruritus [Unknown]
  - Dry mouth [Unknown]
  - Erythema [Unknown]

NARRATIVE: CASE EVENT DATE: 20181122
